FAERS Safety Report 6274455-4 (Version None)
Quarter: 2009Q3

REPORT INFORMATION
  Report Type: 
  Country: None (occurrence: None)
  Receive Date: 20090720
  Receipt Date: 20090708
  Transmission Date: 20100115
  Serious: Yes (Hospitalization)
  Sender: FDA-Public Use
  Company Number: PHHY2009FR29564

PATIENT
  Age: 62 Year
  Sex: Female

DRUGS (5)
  1. NEORAL [Suspect]
     Indication: HEART TRANSPLANT
     Dosage: UNK
     Dates: start: 20020101
  2. CELLCEPT [Concomitant]
     Indication: HEART TRANSPLANT
     Dosage: UNK
  3. VITAMIN K ANTAGONISTS [Concomitant]
  4. TETRACOSACTIDE [Concomitant]
  5. IODINE [Concomitant]

REACTIONS (7)
  - DEEP VEIN THROMBOSIS [None]
  - DRUG HYPERSENSITIVITY [None]
  - DRUG INTOLERANCE [None]
  - PULMONARY EMBOLISM [None]
  - RENAL FAILURE CHRONIC [None]
  - RENAL IMPAIRMENT [None]
  - TUBULOINTERSTITIAL NEPHRITIS [None]
